FAERS Safety Report 13459940 (Version 1)
Quarter: 2017Q2

REPORT INFORMATION
  Report Type: Spontaneous
  Country: US (occurrence: US)
  Receive Date: 20170420
  Receipt Date: 20170420
  Transmission Date: 20170830
  Serious: No
  Sender: FDA-Public Use
  Company Number: US-TEVA-655254USA

PATIENT
  Age: 68 Year
  Sex: Female
  Weight: 86.26 kg

DRUGS (4)
  1. ZOLPIDEM [Suspect]
     Active Substance: ZOLPIDEM\ZOLPIDEM TARTRATE
     Indication: INSOMNIA
     Route: 065
     Dates: start: 2015
  2. METOPROLOL. [Suspect]
     Active Substance: METOPROLOL
     Route: 065
  3. ZOLPIDEM [Suspect]
     Active Substance: ZOLPIDEM\ZOLPIDEM TARTRATE
     Indication: PAIN
     Route: 065
     Dates: start: 2014, end: 2015
  4. SIMVASTATIN. [Suspect]
     Active Substance: SIMVASTATIN
     Route: 065

REACTIONS (7)
  - Pain in extremity [Unknown]
  - Weight increased [Unknown]
  - Mammoplasty [Unknown]
  - Chromaturia [Unknown]
  - Therapeutic response unexpected [Unknown]
  - Cystitis [Unknown]
  - Intentional product use issue [Unknown]

NARRATIVE: CASE EVENT DATE: 201511
